FAERS Safety Report 8267526 (Version 4)
Quarter: 2012Q4

REPORT INFORMATION
  Report Type: 
  Country: JP (occurrence: JP)
  Receive Date: 20111129
  Receipt Date: 20120829
  Transmission Date: 20130627
  Serious: Yes (Congenital Anomaly)
  Sender: FDA-Public Use
  Company Number: JP-BRISTOL-MYERS SQUIBB COMPANY-16252223

PATIENT
  Age: 7 Week
  Sex: Female

DRUGS (1)
  1. ABILIFY TABS [Suspect]
     Dosage: 18mg Transmammary also taken 31Aug11-16Sep11(17day)
     Route: 064
     Dates: end: 20110831

REACTIONS (3)
  - Ventricular septal defect [Not Recovered/Not Resolved]
  - Exposure during breast feeding [Unknown]
  - Foetal exposure timing unspecified [Unknown]
